FAERS Safety Report 8212516-0 (Version None)
Quarter: 2012Q1

REPORT INFORMATION
  Report Type: 
  Country: None (occurrence: None)
  Receive Date: 20120315
  Receipt Date: 20120309
  Transmission Date: 20120608
  Serious: Yes (Hospitalization)
  Sender: FDA-Public Use
  Company Number: DE-GLAXOSMITHKLINE-B0788062A

PATIENT
  Sex: Female
  Weight: 79 kg

DRUGS (2)
  1. LAPATINIB [Suspect]
     Indication: BREAST CANCER
     Dosage: 1250MG PER DAY
     Route: 048
     Dates: start: 20100826
  2. CAPECITABINE [Suspect]
     Indication: BREAST CANCER
     Dosage: 3600MG PER DAY
     Route: 048
     Dates: start: 20100826

REACTIONS (4)
  - CHEST PAIN [None]
  - SALMONELLOSIS [None]
  - GENERAL PHYSICAL HEALTH DETERIORATION [None]
  - DYSPNOEA [None]
